FAERS Safety Report 7558502-5 (Version None)
Quarter: 2011Q2

REPORT INFORMATION
  Report Type: 
  Country: None (occurrence: None)
  Receive Date: 20110620
  Receipt Date: 20110610
  Transmission Date: 20111010
  Serious: Yes (Hospitalization, Other)
  Sender: FDA-Public Use
  Company Number: US-RB-020017-10

PATIENT
  Age: 50 Year
  Sex: Female

DRUGS (6)
  1. CELEXA [Concomitant]
     Indication: DEPRESSION
     Dosage: DOSING INFORMATION UNKNOWN
     Route: 065
  2. KLONOPIN [Concomitant]
     Indication: ANXIETY
     Dosage: DOSING INFORMATION UNKNOWN
     Route: 065
  3. SUBOXONE [Suspect]
     Indication: DRUG DEPENDENCE
     Dosage: SUBLINGUAL FILM
     Route: 060
     Dates: start: 20110101
  4. SUBOXONE [Suspect]
     Indication: DRUG DEPENDENCE
     Route: 060
     Dates: start: 20101201, end: 20110101
  5. SEROQUEL [Concomitant]
     Indication: SLEEP DISORDER
     Dosage: DOSING INFORMATION UNKNOWN
     Route: 065
  6. KLONOPIN [Concomitant]
     Indication: PANIC ATTACK
     Dosage: DOSING INFORMATION UNKNOWN
     Route: 065

REACTIONS (14)
  - TREMOR [None]
  - PYREXIA [None]
  - HEPATITIS C [None]
  - ABDOMINAL PAIN UPPER [None]
  - NASOPHARYNGITIS [None]
  - VOMITING [None]
  - PULMONARY EMBOLISM [None]
  - DRY MOUTH [None]
  - HAEMORRHAGE [None]
  - HYPERGLYCAEMIA [None]
  - LUNG INFECTION [None]
  - BRONCHITIS [None]
  - APHTHOUS STOMATITIS [None]
  - INSOMNIA [None]
